FAERS Safety Report 14582555 (Version 1)
Quarter: 2018Q1

REPORT INFORMATION
  Report Type: Report from Study
  Country: DE (occurrence: DE)
  Receive Date: 20180228
  Receipt Date: 20180228
  Transmission Date: 20180509
  Serious: Yes (Hospitalization)
  Sender: FDA-Public Use
  Company Number: DE-CELGENEUS-DEU-20171206592

PATIENT
  Age: 58 Year
  Sex: Female
  Weight: 75 kg

DRUGS (41)
  1. DL-METHADON [Suspect]
     Active Substance: METHADONE HYDROCHLORIDE
     Route: 065
     Dates: start: 20171115, end: 20171118
  2. DL-METHADON [Suspect]
     Active Substance: METHADONE HYDROCHLORIDE
     Route: 065
     Dates: start: 20171102, end: 20171114
  3. VIT D + CALCIUM (CALCIUM GLUCONATE\CALCIUM PHOSPHATE\ERGOCALCIFEROL) [Concomitant]
     Active Substance: CALCIUM GLUCONATE\CALCIUM PHOSPHATE\ERGOCALCIFEROL
     Indication: SUPPORTIVE CARE
     Dosage: CALCIUM 400 MG + D3
     Route: 065
     Dates: start: 20170906
  4. MARCUMAR [Concomitant]
     Active Substance: PHENPROCOUMON
     Indication: PULMONARY EMBOLISM
     Dosage: 1.5MG/WEEKLY?3MG/WEEKLY
     Route: 065
     Dates: start: 20171219
  5. METOCLOPRAMIDE HYDROCHLORIDE. [Concomitant]
     Active Substance: METOCLOPRAMIDE HYDROCHLORIDE
     Indication: NAUSEA
     Route: 065
     Dates: start: 20170920
  6. NOVALGIN (METAMIZOLE SODIUM) [Concomitant]
     Active Substance: METAMIZOLE SODIUM
     Indication: PAIN
     Dosage: 3 MILLIGRAM
     Route: 065
     Dates: start: 20171218
  7. EMEND [Concomitant]
     Active Substance: APREPITANT
     Indication: NAUSEA
     Dosage: 125/80
     Route: 065
     Dates: start: 20171214
  8. DL-METHADON [Suspect]
     Active Substance: METHADONE HYDROCHLORIDE
     Indication: PAIN
     Route: 065
     Dates: start: 20170920
  9. DL-METHADON [Suspect]
     Active Substance: METHADONE HYDROCHLORIDE
     Dosage: 2 X 20 DROPS
     Route: 065
     Dates: start: 20170906, end: 20171101
  10. ERIBULIN [Suspect]
     Active Substance: ERIBULIN
     Dosage: 2 X 20 DROPS
     Route: 065
     Dates: start: 20170906, end: 20171101
  11. METOCLOPRAMIDE HYDROCHLORIDE. [Concomitant]
     Active Substance: METOCLOPRAMIDE HYDROCHLORIDE
     Route: 065
     Dates: start: 201708
  12. ZOFRAN [Concomitant]
     Active Substance: ONDANSETRON HYDROCHLORIDE
     Indication: NAUSEA
     Route: 065
     Dates: start: 20171110, end: 20171201
  13. ABRAXANE [Suspect]
     Active Substance: PACLITAXEL
     Indication: BREAST CANCER
     Route: 041
     Dates: start: 20170823, end: 20171228
  14. DL-METHADON [Suspect]
     Active Substance: METHADONE HYDROCHLORIDE
     Route: 065
     Dates: start: 20171119, end: 20171214
  15. DL-METHADON [Suspect]
     Active Substance: METHADONE HYDROCHLORIDE
     Route: 065
     Dates: start: 20171218
  16. MARCUMAR [Concomitant]
     Active Substance: PHENPROCOUMON
     Indication: PULMONARY EMBOLISM
     Route: 065
     Dates: start: 201707
  17. NIVESTIM [Concomitant]
     Active Substance: FILGRASTIM
     Indication: LEUKOPENIA
  18. BETAHISTINE [Concomitant]
     Active Substance: BETAHISTINE
     Indication: DIZZINESS
     Dosage: 12 MILLIGRAM
     Route: 065
     Dates: start: 20171011, end: 20171217
  19. AMPHOMORONAL [Concomitant]
     Indication: PROPHYLAXIS
     Route: 065
     Dates: start: 20180125
  20. ERIBULIN [Suspect]
     Active Substance: ERIBULIN
     Route: 065
     Dates: start: 20171214, end: 20171217
  21. DENOSUMAB [Concomitant]
     Active Substance: DENOSUMAB
     Indication: BREAST CANCER
     Route: 065
     Dates: start: 2017
  22. FILGRASTIM [Concomitant]
     Active Substance: FILGRASTIM
     Indication: NEUTROPENIA
     Route: 065
     Dates: start: 20170920
  23. PANTOPRAZOLE [Concomitant]
     Active Substance: PANTOPRAZOLE
     Indication: GASTRITIS PROPHYLAXIS
     Route: 065
     Dates: start: 201611
  24. CEFUROXIME. [Concomitant]
     Active Substance: CEFUROXIME
     Indication: URINARY SEDIMENT PRESENT
     Route: 065
     Dates: start: 20171218, end: 20171222
  25. HALAVEN [Concomitant]
     Active Substance: ERIBULIN MESYLATE
     Indication: BREAST CANCER
     Route: 065
     Dates: start: 20180110, end: 20180117
  26. TAVOR (LORAZEPAM) [Concomitant]
     Active Substance: LORAZEPAM
     Indication: PAIN
     Route: 065
     Dates: start: 20180125
  27. ERIBULIN [Suspect]
     Active Substance: ERIBULIN
     Route: 065
     Dates: start: 20171115, end: 20171118
  28. NOVALGIN (METAMIZOLE SODIUM) [Concomitant]
     Active Substance: METAMIZOLE SODIUM
     Route: 065
     Dates: start: 20170906
  29. NIVESTIM [Concomitant]
     Active Substance: FILGRASTIM
     Indication: PROPHYLAXIS
     Route: 065
     Dates: start: 20170825
  30. DECRISTOL [Concomitant]
     Indication: VITAMIN D DEFICIENCY
     Route: 065
     Dates: start: 20170906, end: 20170906
  31. GRANISETRON [Concomitant]
     Active Substance: GRANISETRON
     Indication: PROPHYLAXIS OF NAUSEA AND VOMITING
     Route: 065
     Dates: start: 20171018, end: 20171201
  32. ERIBULIN [Suspect]
     Active Substance: ERIBULIN
     Indication: BREAST CANCER
     Route: 065
  33. ERIBULIN [Suspect]
     Active Substance: ERIBULIN
     Route: 065
     Dates: start: 20171119, end: 20171214
  34. ERIBULIN [Suspect]
     Active Substance: ERIBULIN
     Route: 065
     Dates: start: 20171218
  35. MOVICOL [Concomitant]
     Active Substance: POLYETHYLENE GLYCOL 3350\POTASSIUM CHLORIDE\SODIUM BICARBONATE\SODIUM CHLORIDE
     Route: 065
     Dates: start: 201708
  36. METAMIZOLE [Concomitant]
     Active Substance: METAMIZOLE
     Indication: PAIN
     Route: 065
     Dates: start: 20170906
  37. CLEXANE [Concomitant]
     Active Substance: ENOXAPARIN SODIUM
     Indication: PROPHYLAXIS
     Dosage: 120 MILLIGRAM
     Route: 065
     Dates: start: 20180125
  38. DL-METHADON [Suspect]
     Active Substance: METHADONE HYDROCHLORIDE
     Route: 065
     Dates: start: 20171214, end: 20171217
  39. ERIBULIN [Suspect]
     Active Substance: ERIBULIN
     Route: 065
     Dates: start: 20171102, end: 20171114
  40. L-THYROXIN [Concomitant]
     Active Substance: LEVOTHYROXINE SODIUM
     Indication: HYPOTHYROIDISM
     Route: 065
     Dates: start: 2007
  41. MOVICOL [Concomitant]
     Active Substance: POLYETHYLENE GLYCOL 3350\POTASSIUM CHLORIDE\SODIUM BICARBONATE\SODIUM CHLORIDE
     Indication: CONSTIPATION
     Route: 065
     Dates: start: 20170906

REACTIONS (18)
  - Drug withdrawal syndrome [Recovered/Resolved]
  - Blood alkaline phosphatase increased [Not Recovered/Not Resolved]
  - Alanine aminotransferase increased [Not Recovered/Not Resolved]
  - Splenomegaly [None]
  - Nausea [None]
  - Hepatic steatosis [None]
  - Fatigue [None]
  - Gamma-glutamyltransferase increased [Not Recovered/Not Resolved]
  - Blood glucose increased [None]
  - Neutropenia [Not Recovered/Not Resolved]
  - Aspartate aminotransferase increased [Not Recovered/Not Resolved]
  - Intervertebral disc protrusion [None]
  - General physical health deterioration [Recovered/Resolved]
  - Gait disturbance [Recovered/Resolved]
  - Metastases to liver [None]
  - Abdominal pain [None]
  - Leukocytosis [None]
  - Alopecia [None]

NARRATIVE: CASE EVENT DATE: 20171227
